FAERS Safety Report 8682028 (Version 2)
Quarter: 2013Q4

REPORT INFORMATION
  Report Type: Spontaneous
  Country: FR (occurrence: FR)
  Receive Date: 20120725
  Receipt Date: 20131105
  Transmission Date: 20140711
  Serious: Yes (Hospitalization)
  Sender: FDA-Public Use
  Company Number: FR-009507513-1207FRA004201

PATIENT
  Age: 29 Year
  Sex: Female

DRUGS (3)
  1. PUREGON [Suspect]
     Indication: OVULATION INDUCTION
     Dosage: 150 IU, QD
     Route: 058
     Dates: start: 20110526, end: 20110603
  2. GONADOTROPHINE CHORIONIQUE ENDO 5000 UI/1ML [Suspect]
     Indication: PRODUCT USED FOR UNKNOWN INDICATION
     Dosage: 5000 IU, ONCE
     Route: 030
     Dates: start: 20110604, end: 20110604
  3. DECAPEPTYL (TRIPTORELIN ACETATE) [Suspect]
     Indication: OVULATION INDUCTION
     Dosage: 0.05 MG, QD
     Dates: start: 20110526, end: 20110603

REACTIONS (2)
  - Abdominal cavity drainage [Recovered/Resolved]
  - Ovarian hyperstimulation syndrome [Recovered/Resolved]
